FAERS Safety Report 25831300 (Version 2)
Quarter: 2025Q3

REPORT INFORMATION
  Report Type: Report from Study
  Country: BR (occurrence: BR)
  Receive Date: 20250922
  Receipt Date: 20250929
  Transmission Date: 20251020
  Serious: Yes (Death)
  Sender: NOVARTIS
  Company Number: BR-002147023-NVSC2025BR147580

PATIENT
  Sex: Female
  Weight: 45 kg

DRUGS (2)
  1. KISQALI [Suspect]
     Active Substance: RIBOCICLIB SUCCINATE
     Indication: Benign breast neoplasm
     Dosage: 200 MG, QD (TAKE 1 TABLET, ORALLY DAILY, FOR 21 DAYS. HAVE A PAUSE OF 07 DAYS)
     Route: 048
  2. FULVESTRANT [Concomitant]
     Active Substance: FULVESTRANT
     Indication: Product used for unknown indication
     Route: 065
     Dates: start: 20240708

REACTIONS (3)
  - Death [Fatal]
  - Anisocytosis [Unknown]
  - Polychromasia [Unknown]
